FAERS Safety Report 6917711-6 (Version None)
Quarter: 2010Q3

REPORT INFORMATION
  Report Type: 
  Country: None (occurrence: None)
  Receive Date: 20100806
  Receipt Date: 20100722
  Transmission Date: 20110219
  Serious: Yes (Other)
  Sender: FDA-Public Use
  Company Number: CN-JNJFOC-20100707833

PATIENT
  Age: 69 Year
  Sex: 0

DRUGS (1)
  1. DACOGEN [Suspect]
     Indication: MYELODYSPLASTIC SYNDROME
     Dosage: 20 MG/M2, 1 IN 1 DAY, INTRAVENOUS DRIP
     Route: 041
     Dates: start: 20090101, end: 20100226

REACTIONS (2)
  - BONE MARROW FAILURE [None]
  - INFECTION [None]
